FAERS Safety Report 10681341 (Version 1)
Quarter: 2014Q4

REPORT INFORMATION
  Report Type: Report from Study
  Country: SY (occurrence: SY)
  Receive Date: 20141230
  Receipt Date: 20141230
  Transmission Date: 20150529
  Serious: Yes (Life-Threatening)
  Sender: FDA-Public Use
  Company Number: SY-009507513-1412SYR012460

PATIENT

DRUGS (3)
  1. TEMOZOLOMIDE. [Suspect]
     Active Substance: TEMOZOLOMIDE
     Indication: CENTRAL NERVOUS SYSTEM LYMPHOMA
     Dosage: 150 MG/M2, FROM DAY 2 THROUGH DAY 6 WITH A TOTAL OF 6 CYCLES WERE GIVEN ON A MONTHLY BASIS
     Route: 048
  2. METHOTREXATE [Suspect]
     Active Substance: METHOTREXATE
     Indication: CENTRAL NERVOUS SYSTEM LYMPHOMA
     Dosage: 3GR/M2 OVER 12 HOURS ON DAY 1, WITH A TOTAL OF 6 CYCLES WERE GIVEN ON A MONTHLY BASIS
     Route: 048
  3. CYTARABINE. [Suspect]
     Active Substance: CYTARABINE
     Indication: CENTRAL NERVOUS SYSTEM LYMPHOMA
     Dosage: 3 GR/M2 EVERY 12 HOURS ON DAY 1, WITH A TOTAL OF 6 CYCLES WERE GIVEN ON A MONTHLY BASIS

REACTIONS (1)
  - Haematotoxicity [Unknown]
